FAERS Safety Report 21741017 (Version 4)
Quarter: 2023Q1

REPORT INFORMATION
  Report Type: Spontaneous
  Country: US (occurrence: US)
  Receive Date: 20221216
  Receipt Date: 20230324
  Transmission Date: 20230418
  Serious: No
  Sender: FDA-Public Use
  Company Number: US-INCYTE CORPORATION-2022IN011994

PATIENT

DRUGS (6)
  1. JAKAFI [Suspect]
     Active Substance: RUXOLITINIB
     Indication: Polycythaemia vera
     Dosage: 5 MILLIGRAM, BID
     Route: 048
     Dates: start: 20210217
  2. JAKAFI [Suspect]
     Active Substance: RUXOLITINIB
     Dosage: 10 MG IN THE MORNING AND ONE HALF OF A 10 MG
     Route: 048
     Dates: start: 20210218
  3. JAKAFI [Suspect]
     Active Substance: RUXOLITINIB
     Dosage: 10MG IN THE MORNING, 5MG IN THE EVENING
     Route: 048
     Dates: start: 20210218
  4. JAKAFI [Suspect]
     Active Substance: RUXOLITINIB
     Dosage: 10 MG IN THE MORNING AND ONE HALF OF A 10 MG
     Route: 048
     Dates: start: 20210218
  5. JAKAFI [Suspect]
     Active Substance: RUXOLITINIB
     Dosage: 10 MILLIGRAM, QD
     Route: 048
     Dates: start: 20220217
  6. JAKAFI [Suspect]
     Active Substance: RUXOLITINIB
     Dosage: 10 MG IN THE MORNING AND ONE HALF OF A 10 MG
     Route: 065
     Dates: start: 20221206

REACTIONS (4)
  - Platelet count increased [Recovering/Resolving]
  - Wrong technique in product usage process [Unknown]
  - Myalgia [Unknown]
  - Urinary tract infection [Unknown]

NARRATIVE: CASE EVENT DATE: 20221206
